FAERS Safety Report 8186911-2 (Version None)
Quarter: 2012Q1

REPORT INFORMATION
  Report Type: 
  Country: None (occurrence: None)
  Receive Date: 20120306
  Receipt Date: 20120220
  Transmission Date: 20120608
  Serious: Yes (Death, Other)
  Sender: FDA-Public Use
  Company Number: JP-PFIZER INC-2012048507

PATIENT
  Age: 65 Year
  Sex: Male
  Weight: 68 kg

DRUGS (9)
  1. KYTRIL [Concomitant]
     Indication: PREMEDICATION
     Dosage: 3 MG, UNK
     Route: 041
     Dates: start: 20110302, end: 20110309
  2. FOY [Concomitant]
     Indication: DISSEMINATED INTRAVASCULAR COAGULATION
     Dosage: 1000 MG, UNK
     Route: 041
     Dates: start: 20110307, end: 20110309
  3. CEFEPIME HYDROCHLORIDE [Concomitant]
     Indication: PROPHYLAXIS
     Dosage: UNK
     Route: 041
     Dates: start: 20110314, end: 20110315
  4. CYTOTEC [Concomitant]
     Indication: PROPHYLAXIS AGAINST GASTROINTESTINAL ULCER
     Dosage: 200 UG, 3X/DAY
     Route: 048
     Dates: start: 20110302, end: 20110309
  5. ETOPOSIDE [Suspect]
     Indication: SMALL CELL LUNG CANCER STAGE UNSPECIFIED
     Dosage: UNK
     Route: 041
     Dates: start: 20110323, end: 20110325
  6. IRINOTECAN HCL [Suspect]
     Indication: SMALL CELL LUNG CANCER STAGE UNSPECIFIED
     Dosage: 100 MGBODY (58.5 MG/M2)
     Route: 041
     Dates: start: 20110302, end: 20110309
  7. LOXONIN [Concomitant]
     Indication: CANCER PAIN
     Dosage: 60 MG, 3X/DAY
     Route: 048
     Dates: start: 20110302, end: 20110309
  8. URSO 250 [Concomitant]
     Indication: LIVER DISORDER
     Dosage: 100 MG, 3X/DAY
     Route: 048
     Dates: start: 20110302, end: 20110309
  9. DECADRON [Concomitant]
     Indication: PREMEDICATION
     Dosage: 6.6 MG, UNK
     Route: 041
     Dates: start: 20110302, end: 20110309

REACTIONS (4)
  - PULMONARY MYCOSIS [None]
  - PNEUMONIA BACTERIAL [None]
  - NEUTROPENIA [None]
  - PULMONARY OEDEMA [None]
